FAERS Safety Report 7292695-2 (Version None)
Quarter: 2011Q1

REPORT INFORMATION
  Report Type: 
  Country: None (occurrence: None)
  Receive Date: 20110215
  Receipt Date: 20110202
  Transmission Date: 20110831
  Serious: Yes (Other)
  Sender: FDA-Public Use
  Company Number: PHHY2009DE52594

PATIENT
  Sex: Female

DRUGS (1)
  1. CGS 20267 [Suspect]
     Indication: BREAST CANCER
     Dosage: 2.5 MG DAILY
     Route: 048
     Dates: start: 20090417

REACTIONS (3)
  - MENTAL DISORDER [None]
  - HYPERHIDROSIS [None]
  - BONE PAIN [None]
